FAERS Safety Report 4869264-4 (Version None)
Quarter: 2005Q4

REPORT INFORMATION
  Report Type: 
  Country: None (occurrence: None)
  Receive Date: 20051230
  Receipt Date: 20051222
  Transmission Date: 20060501
  Serious: Yes (Hospitalization)
  Sender: FDA-Public Use
  Company Number: DE-JNJFOC-20051205159

PATIENT
  Sex: Female

DRUGS (1)
  1. HALOPERIDOL DECANOATE [Suspect]
     Indication: DRUG USE FOR UNKNOWN INDICATION
     Dosage: 6 ML INSTEAD OF 3 ML
     Route: 065

REACTIONS (3)
  - COLD SWEAT [None]
  - DRUG ADMINISTRATION ERROR [None]
  - HYPOTENSION [None]
